FAERS Safety Report 21613761 (Version 2)
Quarter: 2022Q4

REPORT INFORMATION
  Report Type: Report from Study
  Country: JP (occurrence: JP)
  Receive Date: 20221118
  Receipt Date: 20221208
  Transmission Date: 20230113
  Serious: Yes (Other)
  Sender: FDA-Public Use
  Company Number: JP-Accord-287167

PATIENT
  Age: 69 Year
  Sex: Male

DRUGS (3)
  1. CISPLATIN [Suspect]
     Active Substance: CISPLATIN
     Indication: Lung squamous cell carcinoma stage IV
     Dosage: RECEIVED 2 CYCLES
  2. GEMCITABINE [Suspect]
     Active Substance: GEMCITABINE
     Indication: Lung squamous cell carcinoma stage IV
     Dosage: RECEIVED 2 CYCLES
  3. NECITUMUMAB [Suspect]
     Active Substance: NECITUMUMAB
     Indication: Lung squamous cell carcinoma stage IV
     Dosage: RECEIVED 2 CYCLES

REACTIONS (4)
  - Duodenal ulcer [Recovered/Resolved]
  - Anaemia [Unknown]
  - Fatigue [Unknown]
  - Myelosuppression [Unknown]
